FAERS Safety Report 7471268-2 (Version None)
Quarter: 2011Q2

REPORT INFORMATION
  Report Type: 
  Country: None (occurrence: None)
  Receive Date: 20110510
  Receipt Date: 20110505
  Transmission Date: 20111010
  Serious: Yes (Hospitalization)
  Sender: FDA-Public Use
  Company Number: BR-ABBOTT-11P-020-0723985-00

PATIENT
  Sex: Female
  Weight: 68 kg

DRUGS (15)
  1. CALCIUM D [Concomitant]
     Indication: BONE DISORDER
     Route: 048
     Dates: start: 20101101
  2. ARAVA [Concomitant]
     Indication: ARTHRITIS
     Route: 048
     Dates: start: 20060101, end: 20090301
  3. ALENDRONATE SODIUM [Concomitant]
     Indication: PRODUCT USED FOR UNKNOWN INDICATION
     Route: 048
  4. CELECOXIB [Suspect]
     Indication: PAIN
     Route: 048
     Dates: start: 20100501, end: 20100901
  5. METOPROLOL SUCCINATE [Concomitant]
     Indication: BLOOD PRESSURE MANAGEMENT
     Dosage: 0.5 TAB AT MORNING AND 0.5 TAB AT NIGHT
     Route: 048
     Dates: start: 19990101
  6. ACETAMINOPHEN [Concomitant]
     Indication: PAIN
     Route: 048
     Dates: start: 20080101
  7. TRAMADOL 37MG/ PARACETAMOL 325MG (PARATRAM) [Concomitant]
     Indication: PAIN
     Route: 048
     Dates: start: 20110201
  8. UNKNOWN CORTICOID [Concomitant]
     Dosage: 5 MG DAILY(10MG FOR INTENSE PAIN)
  9. HUMIRA [Suspect]
     Indication: RHEUMATOID ARTHRITIS
     Route: 058
     Dates: start: 20090301
  10. METHOTREXATE [Suspect]
     Route: 030
     Dates: start: 20090101
  11. UNKNOWN CORTICOID [Concomitant]
     Indication: ARTHRITIS
     Route: 048
     Dates: start: 19830101
  12. UNKNOWN CORTICOID [Concomitant]
     Dosage: IF PRESENTS INTENSE PAIN
  13. UNKNOWN CORTICOID [Concomitant]
     Dosage: IF PRESENTS INTENSE PAIN
  14. LEVOTHYROXINE SODIUM [Concomitant]
     Indication: PRODUCT USED FOR UNKNOWN INDICATION
     Route: 048
     Dates: start: 20030101
  15. METHOTREXATE [Suspect]
     Indication: ARTHRITIS
     Route: 048
     Dates: start: 20010101, end: 20030101

REACTIONS (12)
  - DYSPNOEA [None]
  - NAUSEA [None]
  - ANAEMIA [None]
  - OROPHARYNGEAL PAIN [None]
  - INFLUENZA [None]
  - NASOPHARYNGITIS [None]
  - RASH MACULAR [None]
  - FEELING ABNORMAL [None]
  - COUGH [None]
  - CHEST PAIN [None]
  - BLOOD PRESSURE INCREASED [None]
  - DECREASED APPETITE [None]
